FAERS Safety Report 25025982 (Version 1)
Quarter: 2025Q1

REPORT INFORMATION
  Report Type: Spontaneous
  Country: CN (occurrence: CN)
  Receive Date: 20250301
  Receipt Date: 20250301
  Transmission Date: 20250409
  Serious: Yes (Hospitalization)
  Sender: CSL BEHRING
  Company Number: CN-BEH-2025197322

PATIENT
  Age: 19 Year
  Sex: Male
  Weight: 59 kg

DRUGS (1)
  1. VELPHORO [Suspect]
     Active Substance: SUCROFERRIC OXYHYDROXIDE
     Indication: Blood phosphorus decreased
     Dosage: UNK, TID
     Route: 048
     Dates: start: 20250121, end: 20250121

REACTIONS (3)
  - Pruritus [Recovering/Resolving]
  - Pain [Unknown]
  - Erythema [Unknown]

NARRATIVE: CASE EVENT DATE: 20250121
